FAERS Safety Report 13557617 (Version 1)
Quarter: 2017Q2

REPORT INFORMATION
  Report Type: Spontaneous
  Country: US (occurrence: US)
  Receive Date: 20170517
  Receipt Date: 20170517
  Transmission Date: 20170830
  Serious: No
  Sender: FDA-Public Use
  Company Number: US-009507513-1705USA004021

PATIENT
  Age: 52 Year
  Sex: Female

DRUGS (1)
  1. BRIDION [Suspect]
     Active Substance: SUGAMMADEX
     Indication: NEUROMUSCULAR BLOCKADE REVERSAL
     Dosage: 2MG I PER 2KG DOSE
     Route: 042
     Dates: start: 201704, end: 201704

REACTIONS (1)
  - Drug effect faster than expected [Unknown]

NARRATIVE: CASE EVENT DATE: 201704
